FAERS Safety Report 8098000-6 (Version None)
Quarter: 2012Q1

REPORT INFORMATION
  Report Type: 
  Country: None (occurrence: None)
  Receive Date: 20120128
  Receipt Date: 20110727
  Transmission Date: 20120608
  Serious: No
  Sender: FDA-Public Use
  Company Number: US-ABBOTT-11P-163-0841941-00

PATIENT
  Sex: Female
  Weight: 90.8 kg

DRUGS (7)
  1. LISINOPRIL AND HYDROCHLOROTHIAZIDE [Concomitant]
     Indication: HYPERTENSION
  2. MINOCYCLINE HCL [Concomitant]
     Indication: SJOGREN'S SYNDROME
  3. HUMIRA [Suspect]
     Indication: SJOGREN'S SYNDROME
     Dates: start: 20100101, end: 20110401
  4. ZOCOR [Concomitant]
     Indication: HYPERLIPIDAEMIA
  5. PLAQUENIL [Concomitant]
     Indication: SJOGREN'S SYNDROME
  6. TEGRETOL [Concomitant]
     Indication: BIPOLAR DISORDER
  7. ZOLOFT [Concomitant]
     Indication: DEPRESSION

REACTIONS (11)
  - OEDEMA PERIPHERAL [None]
  - BRONCHITIS [None]
  - VOMITING [None]
  - GASTRITIS [None]
  - NASOPHARYNGITIS [None]
  - HIATUS HERNIA [None]
  - GASTROOESOPHAGEAL REFLUX DISEASE [None]
  - DYSPHAGIA [None]
  - PAIN [None]
  - GASTRITIS EROSIVE [None]
  - OESOPHAGITIS [None]
